FAERS Safety Report 6699817-2 (Version None)
Quarter: 2010Q2

REPORT INFORMATION
  Report Type: 
  Country: None (occurrence: None)
  Receive Date: 20100428
  Receipt Date: 20090413
  Transmission Date: 20101027
  Serious: No
  Sender: FDA-Public Use
  Company Number: A0829573A

PATIENT
  Age: 83 Year
  Sex: Female

DRUGS (2)
  1. LUXIQ [Suspect]
     Indication: ECZEMA
     Route: 061
  2. LUXIQ [Suspect]
     Indication: PSORIASIS
     Route: 061

REACTIONS (1)
  - SKIN EXFOLIATION [None]
